FAERS Safety Report 8846907 (Version 1)
Quarter: 2012Q4

REPORT INFORMATION
  Report Type: Spontaneous
  Country: US (occurrence: None)
  Receive Date: 20121017
  Receipt Date: 20121017
  Transmission Date: 20130627
  Serious: Yes (Death)
  Sender: FDA-Public Use
  Company Number: E2B_00000419

PATIENT
  Age: 15 Year
  Sex: Male

DRUGS (1)
  1. SERTRALINE [Suspect]
     Indication: DEPRESSION
     Dosage: 50 mg (50 mg, 1 in 1 D), Per oral
     Route: 048
     Dates: start: 20120727, end: 20120924

REACTIONS (2)
  - Completed suicide [None]
  - Asphyxia [None]
